FAERS Safety Report 19941979 (Version 2)
Quarter: 2021Q4

REPORT INFORMATION
  Report Type: Report from Study
  Country: GB (occurrence: GB)
  Receive Date: 20211012
  Receipt Date: 20211102
  Transmission Date: 20220304
  Serious: Yes (Hospitalization, Other)
  Sender: FDA-Public Use
  Company Number: None

PATIENT
  Age: 7 Year
  Sex: Female

DRUGS (13)
  1. TOPOTECAN HYDROCHLORIDE [Suspect]
     Active Substance: TOPOTECAN HYDROCHLORIDE
     Indication: Recurrent cancer
     Dosage: UP TO 5 DAYS IN EACH 21 DAY CYCLE
     Route: 042
     Dates: start: 20210715
  2. CYCLOPHOSPHAMIDE [Suspect]
     Active Substance: CYCLOPHOSPHAMIDE
     Indication: Refractory cancer
     Dosage: 1G
     Route: 065
     Dates: start: 20191223, end: 20200331
  3. IFOSFAMIDE [Suspect]
     Active Substance: IFOSFAMIDE
     Indication: Nephroblastoma
     Route: 065
     Dates: start: 20191223, end: 20200331
  4. VENETOCLAX [Suspect]
     Active Substance: VENETOCLAX
     Indication: Refractory cancer
     Route: 048
     Dates: start: 20210716
  5. OXYCONTIN [Concomitant]
     Active Substance: OXYCODONE HYDROCHLORIDE
     Indication: Pain prophylaxis
     Dosage: 20 MG (10 MG 2 IN 1 DAY), 10 MG, BID
     Route: 048
     Dates: start: 20210714
  6. COTRIMOXAZOLE [Concomitant]
     Active Substance: SULFAMETHOXAZOLE\TRIMETHOPRIM
     Indication: Prophylaxis
     Dosage: BID TWICE A WEEK
     Route: 048
     Dates: start: 20210715
  7. PREGABALIN [Concomitant]
     Active Substance: PREGABALIN
     Indication: Pain prophylaxis
     Route: 048
     Dates: start: 20210701
  8. DEXAMETHASONE [Concomitant]
     Active Substance: DEXAMETHASONE
     Indication: Prophylaxis of nausea and vomiting
     Dosage: ROUTE: PO/IV
     Route: 048
     Dates: start: 20210715
  9. KETAMINE [Concomitant]
     Active Substance: KETAMINE
     Indication: Pain prophylaxis
     Dosage: 2 MG, BID
     Route: 048
     Dates: start: 20210714
  10. METOCLOPRAMIDE [Concomitant]
     Active Substance: METOCLOPRAMIDE
     Indication: Prophylaxis of nausea and vomiting
     Dosage: ROUTE: PO/IV, FREQUENCY: TID/PRN
     Route: 048
     Dates: start: 20210715
  11. MIDAZOLAM [Concomitant]
     Active Substance: MIDAZOLAM
     Indication: Dyspnoea
     Dosage: OROMUCOSAL ROUTE
     Route: 050
     Dates: start: 20210714
  12. ONDANSETRON [Concomitant]
     Active Substance: ONDANSETRON
     Indication: Vomiting
     Dosage: FREQUENCY: TID PRN
     Route: 048
     Dates: start: 20210716
  13. ACETAMINOPHEN [Concomitant]
     Active Substance: ACETAMINOPHEN
     Dosage: QID PRN
     Route: 042
     Dates: start: 20210715

REACTIONS (4)
  - Febrile neutropenia [Recovered/Resolved]
  - Hypotension [Recovered/Resolved]
  - Tachycardia [Recovered/Resolved]
  - Pyrexia [Recovered/Resolved]

NARRATIVE: CASE EVENT DATE: 20210821
